FAERS Safety Report 17086484 (Version 1)
Quarter: 2019Q4

REPORT INFORMATION
  Report Type: Spontaneous
  Country: US (occurrence: US)
  Receive Date: 20191031
  Receipt Date: 20191031
  Transmission Date: 20200122
  Serious: No
  Sender: FDA-Public Use
  Company Number: None

PATIENT
  Age: 42 Year
  Sex: Female

DRUGS (1)
  1. ORTHOVISC INJ 30MG/2ML [Suspect]
     Active Substance: HYALURONIC ACID
     Dosage: ?          OTHER DOSE:1 SYR;OTHER FREQUENCY:OTHER;?
     Route: 014
     Dates: start: 201909

REACTIONS (1)
  - Peripheral swelling [None]

NARRATIVE: CASE EVENT DATE: 20190916
